FAERS Safety Report 24613817 (Version 1)
Quarter: 2024Q4

REPORT INFORMATION
  Report Type: Spontaneous
  Country: IT (occurrence: IT)
  Receive Date: 20241113
  Receipt Date: 20241113
  Transmission Date: 20250114
  Serious: Yes (Other)
  Sender: AUROBINDO
  Company Number: IT-MINISAL02-1008806

PATIENT
  Age: 54 Year
  Sex: Female
  Weight: 60 kg

DRUGS (5)
  1. CARBOPLATIN [Suspect]
     Active Substance: CARBOPLATIN
     Indication: Product used for unknown indication
     Dosage: UNK (THERAPEUTIC SCHEME CARBOPLATIN AUC2 +TAXOL 80 DAYS 1,8,51 Q 28 + PEMBROLIZUMAB)
     Route: 042
     Dates: start: 20240319, end: 20240519
  2. PACLITAXEL [Suspect]
     Active Substance: PACLITAXEL
     Indication: Product used for unknown indication
     Dosage: UNK
     Route: 042
     Dates: start: 20240319, end: 20240519
  3. PEMBROLIZUMAB [Suspect]
     Active Substance: PEMBROLIZUMAB
     Indication: Breast cancer
     Dosage: UNK (FROM 069/18/2024 THE THERAPEUTIC SCHEME CHANGES TO EC90 + PEMBROLIZUMAB)
     Route: 042
     Dates: start: 20240319, end: 20240821
  4. ETOPOSIDE [Suspect]
     Active Substance: ETOPOSIDE
     Indication: Breast cancer
     Dosage: UNK (EC 90 + PEMBROLIZUMAB EVERY 21 DAYS)
     Route: 042
     Dates: start: 20240618, end: 20240824
  5. CYCLOPHOSPHAMIDE [Suspect]
     Active Substance: CYCLOPHOSPHAMIDE
     Indication: Breast cancer
     Dosage: UNK (EC 90 + PEMBROLIZUMAB EVERY 21 DAYS)
     Route: 042
     Dates: start: 20240618, end: 20240821

REACTIONS (1)
  - Hypothyroidism [Recovering/Resolving]

NARRATIVE: CASE EVENT DATE: 20241009
